FAERS Safety Report 18823102 (Version 1)
Quarter: 2021Q1

REPORT INFORMATION
  Report Type: Spontaneous
  Country: GB (occurrence: GB)
  Receive Date: 20210202
  Receipt Date: 20210202
  Transmission Date: 20210419
  Serious: Yes (Other)
  Sender: FDA-Public Use
  Company Number: GB-ALLERGAN-2104607US

PATIENT
  Sex: Male
  Weight: 76.2 kg

DRUGS (7)
  1. CITALOPRAM HYDROBROMIDE ? BP [Suspect]
     Active Substance: CITALOPRAM HYDROBROMIDE
     Indication: ANXIETY
  2. KALYDECO [Concomitant]
     Active Substance: IVACAFTOR
     Indication: ILL-DEFINED DISORDER
     Route: 065
  3. CITALOPRAM HYDROBROMIDE ? BP [Suspect]
     Active Substance: CITALOPRAM HYDROBROMIDE
     Indication: DEPRESSION
  4. AZITHROMYCIN ANHYDROUS. [Concomitant]
     Active Substance: AZITHROMYCIN ANHYDROUS
     Indication: ILL-DEFINED DISORDER
     Route: 065
  5. ZOPICLON [Concomitant]
     Active Substance: ZOPICLONE
     Indication: ILL-DEFINED DISORDER
     Route: 065
  6. CITALOPRAM HYDROBROMIDE ? BP [Suspect]
     Active Substance: CITALOPRAM HYDROBROMIDE
     Indication: ILL-DEFINED DISORDER
     Dosage: 20 MG
     Route: 048
     Dates: start: 20200131
  7. KAFTRIO [Concomitant]
     Active Substance: ELEXACAFTOR\IVACAFTOR\TEZACAFTOR
     Indication: ILL-DEFINED DISORDER
     Route: 065

REACTIONS (9)
  - Night sweats [Not Recovered/Not Resolved]
  - Disturbance in attention [Recovering/Resolving]
  - Nausea [Recovering/Resolving]
  - Sleep disorder [Not Recovered/Not Resolved]
  - Decreased appetite [Recovering/Resolving]
  - Depression [Recovering/Resolving]
  - Agitation [Recovering/Resolving]
  - Off label use [Unknown]
  - Confusional state [Recovering/Resolving]

NARRATIVE: CASE EVENT DATE: 20200131
